FAERS Safety Report 5158475-9 (Version None)
Quarter: 2006Q4

REPORT INFORMATION
  Report Type: 
  Country: None (occurrence: None)
  Receive Date: 20061116
  Receipt Date: 20061107
  Transmission Date: 20070319
  Serious: Yes (Hospitalization)
  Sender: FDA-Public Use
  Company Number: GXKR2006IT07221

PATIENT
  Age: 48 Year
  Sex: Male

DRUGS (1)
  1. AMOXICILLIN TRIHYDRATE [Suspect]
     Indication: LARYNGOPHARYNGITIS
     Dosage: 1000 MG, ONCE/SINGLE, ORAL
     Route: 048
     Dates: start: 20061018, end: 20061018

REACTIONS (2)
  - LARYNGEAL OEDEMA [None]
  - URTICARIA [None]
